FAERS Safety Report 14543501 (Version 2)
Quarter: 2018Q2

REPORT INFORMATION
  Report Type: Spontaneous
  Country: US (occurrence: US)
  Receive Date: 20180216
  Receipt Date: 20180504
  Transmission Date: 20180711
  Serious: Yes (Disabling, Other)
  Sender: FDA-Public Use
  Company Number: US-REGENERON PHARMACEUTICALS, INC.-2018-14448

PATIENT

DRUGS (4)
  1. EYLEA [Suspect]
     Active Substance: AFLIBERCEPT
     Indication: DIABETIC RETINOPATHY
     Dosage: UNK
     Route: 031
     Dates: start: 201412
  2. EYLEA [Suspect]
     Active Substance: AFLIBERCEPT
     Dosage: OD
     Route: 031
     Dates: start: 20170821, end: 20170821
  3. EYLEA [Suspect]
     Active Substance: AFLIBERCEPT
     Dosage: OD
     Route: 031
     Dates: start: 20171220, end: 20171220
  4. EYLEA [Suspect]
     Active Substance: AFLIBERCEPT
     Dosage: OS
     Route: 031
     Dates: start: 20171220, end: 20171220

REACTIONS (4)
  - Blindness transient [Recovering/Resolving]
  - Endophthalmitis [Recovered/Resolved]
  - Eye infection staphylococcal [Recovered/Resolved]
  - Drug hypersensitivity [Unknown]

NARRATIVE: CASE EVENT DATE: 20180117
